FAERS Safety Report 4496954-8 (Version None)
Quarter: 2004Q4

REPORT INFORMATION
  Report Type: 
  Country: None (occurrence: None)
  Receive Date: 20041109
  Receipt Date: 20041101
  Transmission Date: 20050328
  Serious: Yes (Hospitalization)
  Sender: FDA-Public Use
  Company Number: US-MERCK-0411USA00219

PATIENT
  Age: 48 Year
  Sex: Female

DRUGS (5)
  1. VIOXX [Suspect]
     Indication: MUSCLE CRAMP
     Route: 048
     Dates: start: 20030715, end: 20040101
  2. LISINOPRIL [Concomitant]
     Route: 065
  3. PROTONIX [Concomitant]
     Route: 065
  4. TOPROL-XL [Concomitant]
     Route: 065
  5. HYDROCHLOROTHIAZIDE [Concomitant]
     Route: 065

REACTIONS (2)
  - CHEST PAIN [None]
  - HEART RATE IRREGULAR [None]
